FAERS Safety Report 15453438 (Version 1)
Quarter: 2018Q4

REPORT INFORMATION
  Report Type: Report from Study
  Country: US (occurrence: US)
  Receive Date: 20181001
  Receipt Date: 20181001
  Transmission Date: 20190204
  Serious: No
  Sender: FDA-Public Use
  Company Number: PHEH2018US040344

PATIENT
  Sex: Female

DRUGS (1)
  1. COSENTYX [Suspect]
     Active Substance: SECUKINUMAB
     Indication: DERMATITIS
     Dosage: UNK
     Route: 058

REACTIONS (4)
  - Alopecia [Unknown]
  - Rash [Unknown]
  - Bacterial infection [Unknown]
  - Product prescribing issue [Unknown]
